FAERS Safety Report 20756758 (Version 1)
Quarter: 2022Q2

REPORT INFORMATION
  Report Type: Spontaneous
  Country: US (occurrence: US)
  Receive Date: 20220427
  Receipt Date: 20220427
  Transmission Date: 20220720
  Serious: No
  Sender: FDA-Public Use
  Company Number: US-009507513-2203USA010046

PATIENT
  Age: 58 Year
  Sex: Male

DRUGS (1)
  1. PRINIVIL [Suspect]
     Active Substance: LISINOPRIL
     Indication: Increased ventricular afterload
     Dosage: 5 MILLIGRAM, QD

REACTIONS (1)
  - Product use in unapproved indication [Unknown]
